FAERS Safety Report 23222036 (Version 1)
Quarter: 2023Q4

REPORT INFORMATION
  Report Type: Spontaneous
  Country: US (occurrence: US)
  Receive Date: 20231123
  Receipt Date: 20231123
  Transmission Date: 20240110
  Serious: Yes (Other)
  Sender: FDA-Public Use
  Company Number: US-TEVA-2023-US-2946919

PATIENT
  Age: 15 Year
  Sex: Female

DRUGS (26)
  1. DEXAMETHASONE [Suspect]
     Active Substance: DEXAMETHASONE
     Indication: Nausea
     Route: 065
  2. IMATINIB [Suspect]
     Active Substance: IMATINIB
     Indication: Gastrointestinal stromal tumour
     Dosage: 400 MILLIGRAM DAILY;
     Route: 065
  3. IMATINIB [Suspect]
     Active Substance: IMATINIB
     Dosage: 600 MILLIGRAM DAILY;
     Route: 065
  4. SUNITINIB [Suspect]
     Active Substance: SUNITINIB
     Indication: Gastrointestinal stromal tumour
     Dosage: 4 WEEKS ON AND 2 WEEKS OFF
     Route: 065
  5. SUNITINIB [Suspect]
     Active Substance: SUNITINIB
     Indication: Metastases to liver
  6. SUNITINIB [Suspect]
     Active Substance: SUNITINIB
     Indication: Paraganglion neoplasm
  7. REGORAFENIB [Suspect]
     Active Substance: REGORAFENIB
     Indication: Gastrointestinal stromal tumour
     Dosage: 21 DAYS ON, 7 DAYS OFF
     Route: 065
  8. REGORAFENIB [Suspect]
     Active Substance: REGORAFENIB
     Indication: Metastases to liver
  9. REGORAFENIB [Suspect]
     Active Substance: REGORAFENIB
     Indication: Paraganglion neoplasm
  10. NILOTINIB [Suspect]
     Active Substance: NILOTINIB
     Indication: Gastrointestinal stromal tumour
     Dosage: 400 MILLIGRAM DAILY;
     Route: 065
  11. NILOTINIB [Suspect]
     Active Substance: NILOTINIB
     Indication: Metastases to liver
  12. NILOTINIB [Suspect]
     Active Substance: NILOTINIB
     Indication: Paraganglion neoplasm
  13. AUY922 [Suspect]
     Active Substance: AUY922
     Indication: Gastrointestinal stromal tumour
     Route: 065
  14. AUY922 [Suspect]
     Active Substance: AUY922
     Indication: Paraganglion neoplasm
  15. AUY922 [Suspect]
     Active Substance: AUY922
     Indication: Metastases to liver
  16. VANDETANIB [Suspect]
     Active Substance: VANDETANIB
     Indication: Gastrointestinal stromal tumour
     Dosage: 200 MILLIGRAM DAILY;
     Route: 065
  17. VANDETANIB [Suspect]
     Active Substance: VANDETANIB
     Indication: Metastases to liver
  18. VANDETANIB [Suspect]
     Active Substance: VANDETANIB
     Indication: Paraganglion neoplasm
  19. TEMOZOLOMIDE [Suspect]
     Active Substance: TEMOZOLOMIDE
     Indication: Gastrointestinal stromal tumour
     Dosage: ADMINISTERED DAILY FOR 7 DAYS IN 21-DAY CYCLES
     Route: 065
  20. TEMOZOLOMIDE [Suspect]
     Active Substance: TEMOZOLOMIDE
     Indication: Metastases to bone
  21. TEMOZOLOMIDE [Suspect]
     Active Substance: TEMOZOLOMIDE
     Indication: Metastases to liver
  22. TEMOZOLOMIDE [Suspect]
     Active Substance: TEMOZOLOMIDE
     Indication: Paraganglion neoplasm
  23. OLAPARIB [Concomitant]
     Active Substance: OLAPARIB
     Indication: Gastrointestinal stromal tumour
     Dosage: ADMINISTERED 2 TIMES DAILY FOR 7 DAYS IN 21-DAY CYCLES
     Route: 065
  24. OLAPARIB [Concomitant]
     Active Substance: OLAPARIB
     Indication: Metastases to bone
  25. OLAPARIB [Concomitant]
     Active Substance: OLAPARIB
     Indication: Metastases to liver
  26. OLAPARIB [Concomitant]
     Active Substance: OLAPARIB
     Indication: Paraganglion neoplasm

REACTIONS (9)
  - Hypertension [Unknown]
  - Skin toxicity [Unknown]
  - Nephropathy toxic [Unknown]
  - Drug-induced liver injury [Unknown]
  - Nausea [Unknown]
  - Substance-induced psychotic disorder [Unknown]
  - Drug intolerance [Unknown]
  - Toxicity to various agents [Unknown]
  - Drug ineffective [Unknown]
